FAERS Safety Report 11656716 (Version 1)
Quarter: 2015Q4

REPORT INFORMATION
  Report Type: Other
  Country: GB (occurrence: GB)
  Receive Date: 20151023
  Receipt Date: 20151023
  Transmission Date: 20160304
  Serious: Yes (Other)
  Sender: FDA-Public Use
  Company Number: GB-SHIRE-GB201513074

PATIENT
  Sex: Male

DRUGS (1)
  1. ELAPRASE [Suspect]
     Active Substance: IDURSULFASE
     Indication: MUCOPOLYSACCHARIDOSIS II
     Dosage: 6 MG (1 X 6MG VIAL) (ALTERNATING WITH 12 MG (2 X 6MG VIALS)), 1X/WEEK
     Route: 041
     Dates: start: 20140714

REACTIONS (5)
  - Subcutaneous abscess [Unknown]
  - Infusion related reaction [Unknown]
  - Rash [Unknown]
  - Body temperature increased [Unknown]
  - Abscess limb [Unknown]
